FAERS Safety Report 8321626-9 (Version None)
Quarter: 2012Q2

REPORT INFORMATION
  Report Type: 
  Country: None (occurrence: None)
  Receive Date: 20120430
  Receipt Date: 20120419
  Transmission Date: 20120825
  Serious: Yes (Hospitalization, Other)
  Sender: FDA-Public Use
  Company Number: US-SANOFI-AVENTIS-2012SA027655

PATIENT
  Age: 58 Year
  Sex: Female
  Weight: 46.26 kg

DRUGS (9)
  1. COLCHICINE [Concomitant]
  2. CALCIUM CARBONATE [Concomitant]
  3. PLAVIX [Suspect]
     Dates: end: 20120419
  4. PROTONIX [Concomitant]
  5. CARAFATE [Concomitant]
  6. PRILOSEC [Concomitant]
     Dates: end: 20110101
  7. ZANTAC [Concomitant]
  8. PLAVIX [Suspect]
     Indication: CHEST PAIN
     Dates: end: 20120419
  9. PLAVIX [Suspect]
     Dates: end: 20120419

REACTIONS (18)
  - WEIGHT DECREASED [None]
  - ERUCTATION [None]
  - IRRITABLE BOWEL SYNDROME [None]
  - ABDOMINAL DISTENSION [None]
  - ASTHENIA [None]
  - ABDOMINAL PAIN UPPER [None]
  - DIARRHOEA [None]
  - MASS [None]
  - CONSTIPATION [None]
  - TRANSIENT ISCHAEMIC ATTACK [None]
  - CROHN'S DISEASE [None]
  - COLITIS [None]
  - HIATUS HERNIA [None]
  - ANAEMIA [None]
  - GASTRIC ULCER [None]
  - GASTROOESOPHAGEAL REFLUX DISEASE [None]
  - CONDITION AGGRAVATED [None]
  - VASCULAR OCCLUSION [None]
